FAERS Safety Report 5198378-7 (Version None)
Quarter: 2006Q4

REPORT INFORMATION
  Report Type: 
  Country: None (occurrence: None)
  Receive Date: 20061228
  Receipt Date: 20061228
  Transmission Date: 20070319
  Serious: No
  Sender: FDA-Public Use
  Company Number: None

PATIENT
  Age: 20 Year
  Sex: Female
  Weight: 54.2 kg

DRUGS (1)
  1. MOXIFLOXACIN HCL [Suspect]
     Indication: PNEUMONIA
     Dosage: 400 MG ONCE PO
     Route: 048
     Dates: start: 20061223, end: 20061224

REACTIONS (3)
  - DYSARTHRIA [None]
  - MOVEMENT DISORDER [None]
  - SPEECH DISORDER [None]
